FAERS Safety Report 8561253-1 (Version None)
Quarter: 2012Q3

REPORT INFORMATION
  Report Type: 
  Country: None (occurrence: None)
  Receive Date: 20120802
  Receipt Date: 20120725
  Transmission Date: 20120928
  Serious: Yes (Hospitalization)
  Sender: FDA-Public Use
  Company Number: GB-JNJFOC-20120713320

PATIENT
  Sex: Male
  Weight: 82 kg

DRUGS (23)
  1. DIFFLAM [Concomitant]
     Route: 065
  2. DOVONEX [Concomitant]
     Route: 065
  3. ESOMEPRAZOLE [Concomitant]
     Route: 065
     Dates: start: 20110525
  4. LORATADINE [Concomitant]
     Route: 065
  5. REBOXETINE [Concomitant]
     Route: 065
  6. MIRTAZAPINE [Concomitant]
     Route: 065
  7. XAMIOL [Concomitant]
     Route: 065
  8. MOVIPREP [Concomitant]
     Route: 065
     Dates: start: 20110411
  9. METOCLOPRAMIDE [Concomitant]
     Route: 065
  10. PANTOPRAZOLE [Concomitant]
     Route: 065
  11. BETNESOL [Concomitant]
     Route: 065
     Dates: start: 20110115
  12. XYLOPROCT [Concomitant]
     Route: 065
     Dates: start: 20110518
  13. TRAMADOL HCL [Concomitant]
     Route: 065
  14. STELARA [Suspect]
     Indication: PSORIASIS
     Route: 058
     Dates: start: 20101116
  15. ALPHOSYL HC [Concomitant]
     Route: 065
  16. BETAMETHASONE [Concomitant]
     Route: 065
  17. TRIMOVATE [Concomitant]
     Route: 065
  18. COAL TAR [Concomitant]
     Route: 065
  19. GAVISCON (ANTACID) [Concomitant]
  20. CO-DYDRAMOL [Concomitant]
     Route: 065
  21. NERISONE [Concomitant]
  22. DIHYDROCODEINE BITARTRATE INJ [Concomitant]
     Route: 065
     Dates: start: 20111115
  23. CETIRIZINE HCL [Concomitant]
     Route: 065
     Dates: start: 20110515

REACTIONS (2)
  - SALIVARY GLAND DISORDER [None]
  - POST PROCEDURAL INFECTION [None]
